FAERS Safety Report 16689073 (Version 2)
Quarter: 2019Q3

REPORT INFORMATION
  Report Type: Spontaneous
  Country: NL (occurrence: DE)
  Receive Date: 20190809
  Receipt Date: 20190821
  Transmission Date: 20191004
  Serious: Yes (Death, Other)
  Sender: FDA-Public Use
  Company Number: DE-FRESENIUS KABI-FK201908582

PATIENT
  Age: 33 Year
  Sex: Female
  Weight: 70 kg

DRUGS (11)
  1. PROPOFOL (MANUFACTURER UNKNOWN) [Suspect]
     Active Substance: PROPOFOL
     Indication: TRACHEOSTOMY
     Route: 041
  2. SIMVASTATIN. [Concomitant]
     Active Substance: SIMVASTATIN
     Indication: PRODUCT USED FOR UNKNOWN INDICATION
     Route: 048
  3. SUFENTANIL [Concomitant]
     Active Substance: SUFENTANIL
     Indication: SEDATIVE THERAPY
     Dosage: DAILY DOSE: 30 ?G MICROGRAM(S) EVERY HOURS
     Route: 041
  4. PROPOFOL (MANUFACTURER UNKNOWN) [Suspect]
     Active Substance: PROPOFOL
     Indication: SEDATIVE THERAPY
     Dosage: 200-500MG/H
     Route: 041
  5. DEXAMETHASONE SODIUM SUCCINATE [Concomitant]
     Active Substance: DEXAMETHASONE SODIUM SUCCINATE
     Indication: INTRACRANIAL PRESSURE INCREASED
     Route: 040
  6. NIMODIPINE. [Concomitant]
     Active Substance: NIMODIPINE
     Indication: PROPHYLAXIS
     Dosage: MAX. 1 MG/H
     Route: 041
  7. NOREPINEPHRINE. [Concomitant]
     Active Substance: NOREPINEPHRINE
     Indication: SUPPORTIVE CARE
     Dosage: DAILY DOSE: 0.3 MG MILLGRAM(S) EVERY HOURS
     Route: 041
  8. LEVONORGESTREL. [Concomitant]
     Active Substance: LEVONORGESTREL
     Indication: PRODUCT USED FOR UNKNOWN INDICATION
     Route: 065
  9. MANNITOL. [Concomitant]
     Active Substance: MANNITOL
     Indication: CSF PRESSURE
     Route: 040
  10. MIDAZOLAM [Concomitant]
     Active Substance: MIDAZOLAM HYDROCHLORIDE
     Indication: SEDATIVE THERAPY
     Dosage: DAILY DOSE: 30 MG MILLGRAM(S) EVERY HOURS
     Route: 041
  11. PROPOFOL (MANUFACTURER UNKNOWN) [Suspect]
     Active Substance: PROPOFOL
     Indication: COMPUTERISED TOMOGRAM
     Route: 041

REACTIONS (7)
  - Rhabdomyolysis [Fatal]
  - Dialysis [Fatal]
  - Blood creatine phosphokinase increased [Fatal]
  - Circulatory collapse [Fatal]
  - Lactic acidosis [Fatal]
  - Propofol infusion syndrome [Fatal]
  - Hyperkalaemia [Fatal]

NARRATIVE: CASE EVENT DATE: 201805
